FAERS Safety Report 24247923 (Version 1)
Quarter: 2024Q3

REPORT INFORMATION
  Report Type: Spontaneous
  Country: BR (occurrence: BR)
  Receive Date: 20240826
  Receipt Date: 20240826
  Transmission Date: 20241016
  Serious: Yes (Other)
  Sender: CHEPLAPHARM
  Company Number: BR-ROCHE-10000056349

PATIENT
  Age: 71 Year
  Sex: Female
  Weight: 52 kg

DRUGS (5)
  1. CAPECITABINE [Suspect]
     Active Substance: CAPECITABINE
     Indication: Breast cancer
     Dosage: 3 CAPSULES AT MORNING AND 2 CAPSULES AT NIGHT
     Route: 048
     Dates: start: 202401, end: 202401
  2. CAPECITABINE [Suspect]
     Active Substance: CAPECITABINE
     Indication: Metastases to bone
     Dosage: 3 CAPSULES AT MORNING AND 2 CAPSULES AT NIGHT
     Route: 048
     Dates: start: 202401, end: 202401
  3. CAPECITABINE [Suspect]
     Active Substance: CAPECITABINE
     Indication: Gastrointestinal carcinoma
     Dosage: 3 CAPSULES AT MORNING AND 2 CAPSULES AT NIGHT
     Route: 048
     Dates: start: 202401, end: 202401
  4. ATENOLOL [Concomitant]
     Active Substance: ATENOLOL
  5. PHENYTOIN SODIUM [Concomitant]
     Active Substance: PHENYTOIN SODIUM

REACTIONS (13)
  - Bone cancer [Unknown]
  - Seizure [Unknown]
  - Poisoning [Unknown]
  - Nail discolouration [Unknown]
  - Dry eye [Unknown]
  - Eye haemorrhage [Unknown]
  - Abnormal sensation in eye [Unknown]
  - Skin fissures [Unknown]
  - Skin fissures [Unknown]
  - Varicose vein [Unknown]
  - Speech disorder [Unknown]
  - Thermal burn [Not Recovered/Not Resolved]
  - Tooth loss [Unknown]

NARRATIVE: CASE EVENT DATE: 20240501
